FAERS Safety Report 7390883-8 (Version None)
Quarter: 2011Q2

REPORT INFORMATION
  Report Type: 
  Country: None (occurrence: None)
  Receive Date: 20110404
  Receipt Date: 20110318
  Transmission Date: 20111010
  Serious: No
  Sender: FDA-Public Use
  Company Number: US-ROXANE LABORATORIES, INC.-2011-RO-00295RO

PATIENT
  Age: 50 Year
  Sex: Female
  Weight: 75 kg

DRUGS (4)
  1. CARISOPRODOL [Concomitant]
     Indication: MUSCLE SPASMS
     Dosage: 1200 MG
     Dates: start: 20110205
  2. BUPRENORPHINE HYDROCHLORIDE [Suspect]
     Indication: DRUG DEPENDENCE
     Dosage: 24 MG
     Route: 060
     Dates: start: 20100727
  3. ALMOPRIGINE [Concomitant]
     Indication: MANIA
  4. RISPERDAL [Concomitant]
     Indication: MANIA
     Dates: start: 20110115

REACTIONS (3)
  - TABLET PHYSICAL ISSUE [None]
  - DRUG INEFFECTIVE [None]
  - PRODUCT FRIABLE [None]
